FAERS Safety Report 17816646 (Version 1)
Quarter: 2020Q2

REPORT INFORMATION
  Report Type: Spontaneous
  Country: US (occurrence: US)
  Receive Date: 20200522
  Receipt Date: 20200522
  Transmission Date: 20200714
  Serious: Yes (Hospitalization)
  Sender: FDA-Public Use
  Company Number: None

PATIENT
  Age: 60 Year
  Sex: Male

DRUGS (10)
  1. CONTOUR [Concomitant]
  2. FOLIC ACID. [Concomitant]
     Active Substance: FOLIC ACID
  3. CLOMIPRAMINE [Concomitant]
     Active Substance: CLOMIPRAMINE
  4. UROGESIC [Concomitant]
  5. FINASTERIDE. [Concomitant]
     Active Substance: FINASTERIDE
  6. TADALAFIL. [Concomitant]
     Active Substance: TADALAFIL
  7. METFORMIN [Concomitant]
     Active Substance: METFORMIN HYDROCHLORIDE
  8. VITAMIN D [Concomitant]
     Active Substance: VITAMIN D NOS
  9. REPATHA [Suspect]
     Active Substance: EVOLOCUMAB
     Indication: HYPERLIPIDAEMIA
     Dosage: ?          OTHER FREQUENCY:EVERY 2 WEEKS;?
     Route: 058
     Dates: start: 20191221
  10. CEPHALEXIN. [Concomitant]
     Active Substance: CEPHALEXIN

REACTIONS (1)
  - Surgery [None]

NARRATIVE: CASE EVENT DATE: 20200501
